FAERS Safety Report 5558111-3 (Version None)
Quarter: 2007Q4

REPORT INFORMATION
  Report Type: 
  Country: None (occurrence: None)
  Receive Date: 20071130
  Receipt Date: 20070828
  Transmission Date: 20080405
  Serious: No
  Sender: FDA-Public Use
  Company Number: US200708006556

PATIENT
  Age: 53 Year
  Sex: Female

DRUGS (16)
  1. BYETTA [Suspect]
     Indication: TYPE 2 DIABETES MELLITUS
     Dosage: 5 UG, 2/D, SUBCUTANEOUS
     Route: 058
     Dates: start: 20070714
  2. GLYNASE [Concomitant]
  3. GLUCOPHAGE [Concomitant]
  4. LANTUS [Concomitant]
  5. HUMULIN 30/70 (INSULIN HUMAN INJECTION, ISOPHANE) [Concomitant]
  6. INSULIN, REGULAR (INSULIN) [Concomitant]
  7. PRILOSEC [Concomitant]
  8. CARAFATE [Concomitant]
  9. NEURONTIN [Concomitant]
  10. HYDROCODONE BITARTRATE [Concomitant]
  11. OXYCONTIN [Concomitant]
  12. BACLOFEN [Concomitant]
  13. CELEBREX [Concomitant]
  14. WELLBUTRIN [Concomitant]
  15. BUSPAR [Concomitant]
  16. VALIUM [Concomitant]

REACTIONS (4)
  - BLOOD GLUCOSE DECREASED [None]
  - DIZZINESS [None]
  - NAUSEA [None]
  - STOMACH DISCOMFORT [None]
